FAERS Safety Report 12690197 (Version 2)
Quarter: 2016Q3

REPORT INFORMATION
  Report Type: Report from Study
  Country: US (occurrence: US)
  Receive Date: 20160826
  Receipt Date: 20160921
  Transmission Date: 20161109
  Serious: Yes (Hospitalization)
  Sender: FDA-Public Use
  Company Number: US-ACTELION-A-NJ2016-140962

PATIENT
  Age: 70 Year
  Sex: Female

DRUGS (14)
  1. ACARBOSE. [Concomitant]
     Active Substance: ACARBOSE
  2. UPTRAVI [Suspect]
     Active Substance: SELEXIPAG
     Indication: PULMONARY ARTERIAL HYPERTENSION
     Dosage: 400 MCG, BID
     Route: 048
  3. UPTRAVI [Suspect]
     Active Substance: SELEXIPAG
     Dosage: 1400 MCG, BID
     Route: 048
  4. SINGULAIR [Concomitant]
     Active Substance: MONTELUKAST SODIUM
  5. WARFARIN [Concomitant]
     Active Substance: WARFARIN
  6. LAMICTAL [Concomitant]
     Active Substance: LAMOTRIGINE
  7. MIRAPEX [Concomitant]
     Active Substance: PRAMIPEXOLE DIHYDROCHLORIDE
  8. UPTRAVI [Suspect]
     Active Substance: SELEXIPAG
     Dosage: UNK
     Route: 048
     Dates: start: 20160613
  9. DHEA [Concomitant]
     Active Substance: PRASTERONE
  10. ARMOUR THYROID [Concomitant]
     Active Substance: THYROID, PORCINE
  11. BUMETANIDE. [Concomitant]
     Active Substance: BUMETANIDE
  12. PRAVASTATIN. [Concomitant]
     Active Substance: PRAVASTATIN
  13. PANTOPRAZOLE [Concomitant]
     Active Substance: PANTOPRAZOLE SODIUM
  14. TRILEPTAL [Concomitant]
     Active Substance: OXCARBAZEPINE

REACTIONS (8)
  - Balance disorder [Unknown]
  - Pain [Unknown]
  - Nausea [Unknown]
  - Somnolence [Unknown]
  - Skin ulcer [Unknown]
  - Gait disturbance [Unknown]
  - Dyspnoea [Unknown]
  - Headache [Unknown]

NARRATIVE: CASE EVENT DATE: 20160629
